FAERS Safety Report 7933822-0 (Version None)
Quarter: 2011Q4

REPORT INFORMATION
  Report Type: 
  Country: None (occurrence: None)
  Receive Date: 20111122
  Receipt Date: 20111116
  Transmission Date: 20120403
  Serious: Yes (Hospitalization, Other)
  Sender: FDA-Public Use
  Company Number: PHHY2011TR101383

PATIENT
  Sex: Female
  Weight: 89.5 kg

DRUGS (6)
  1. NEORAL [Concomitant]
     Dosage: 125 MG/DAY (75 + 50 MG)
     Dates: start: 20110404, end: 20110418
  2. NEORAL [Concomitant]
     Dosage: 125 MG/DAY (50 + 25 MG)
     Dates: start: 20110512, end: 20110608
  3. NEORAL [Concomitant]
     Dosage: 50 MG, BID
     Dates: start: 20110608, end: 20110921
  4. NEORAL [Concomitant]
     Dosage: 50 MG, BID
     Dates: start: 20110419, end: 20110512
  5. EVEROLIMUS [Suspect]
     Dosage: 1.25 MG/DAY (0.75 + 0.50 MG)
     Route: 048
     Dates: start: 20110404, end: 20111028
  6. NEORAL [Concomitant]
     Dosage: 125 MG/DAY (50 + 25 MG)
     Dates: start: 20110921, end: 20111026

REACTIONS (3)
  - DIABETIC FOOT [None]
  - SKIN LESION [None]
  - ANAEMIA [None]
